FAERS Safety Report 8996253 (Version 1)
Quarter: 2013Q1

REPORT INFORMATION
  Report Type: Spontaneous
  Country: US (occurrence: US)
  Receive Date: 20130103
  Receipt Date: 20130103
  Transmission Date: 20140127
  Serious: Yes (Hospitalization)
  Sender: FDA-Public Use
  Company Number: US-ALLERGAN-1218120US

PATIENT
  Age: 50 Year
  Sex: Male

DRUGS (3)
  1. BOTOX COSMETIC [Suspect]
     Indication: SKIN WRINKLING
     Dosage: UNK, SINGLE
     Route: 030
     Dates: start: 20120902, end: 20120902
  2. SYNTHROID [Concomitant]
     Indication: HYPOTHYROIDISM
     Dosage: 100 ?G, QD
     Route: 048
  3. INSULIN [Concomitant]
     Indication: TYPE 1 DIABETES MELLITUS
     Dosage: UNK UNK, PRN
     Route: 058

REACTIONS (9)
  - Pneumonia [Unknown]
  - Influenza like illness [Recovered/Resolved]
  - Asthenia [Recovered/Resolved]
  - Fatigue [Unknown]
  - Muscular weakness [Unknown]
  - Respiratory disorder [Unknown]
  - Feeling hot [Unknown]
  - Tremor [Unknown]
  - Chills [Unknown]
